FAERS Safety Report 19005934 (Version 1)
Quarter: 2021Q1

REPORT INFORMATION
  Report Type: Report from Study
  Country: PT (occurrence: PT)
  Receive Date: 20210314
  Receipt Date: 20210314
  Transmission Date: 20210420
  Serious: Yes (Death)
  Sender: FDA-Public Use
  Company Number: PT-TEVA-2021-PT-1887653

PATIENT
  Age: 61 Year
  Sex: Female

DRUGS (3)
  1. CARBAMAZEPINE. [Interacting]
     Active Substance: CARBAMAZEPINE
     Indication: PRODUCT USED FOR UNKNOWN INDICATION
     Route: 065
  2. OLANZAPINE. [Suspect]
     Active Substance: OLANZAPINE
     Indication: COMPLETED SUICIDE
     Route: 065
  3. OLANZAPINE. [Interacting]
     Active Substance: OLANZAPINE
     Indication: BIPOLAR DISORDER

REACTIONS (3)
  - Toxicity to various agents [Fatal]
  - Drug interaction [Fatal]
  - Completed suicide [Fatal]
